FAERS Safety Report 6124063-0 (Version None)
Quarter: 2009Q1

REPORT INFORMATION
  Report Type: 
  Country: None (occurrence: None)
  Receive Date: 20090319
  Receipt Date: 20090311
  Transmission Date: 20090719
  Serious: Yes (Hospitalization)
  Sender: FDA-Public Use
  Company Number: PHHY2009DE09336

PATIENT

DRUGS (12)
  1. RASILEZ [Suspect]
     Indication: HYPERTENSION
     Dosage: 300 MG, QD
     Route: 048
     Dates: start: 20080101, end: 20081210
  2. ACETYLSALICYLIC ACID SRT [Concomitant]
     Indication: PROPHYLAXIS
     Dosage: 100 MG, QD
     Route: 048
  3. AZOPT [Concomitant]
     Indication: GLAUCOMA
     Dosage: 1 DF, BID
  4. BIFITERAL ^PHILIPS^ [Concomitant]
     Indication: CONSTIPATION
  5. DELMUNO [Concomitant]
     Indication: HYPERTENSION
     Dosage: 5 MG, QD
  6. EBRANTIL [Concomitant]
     Indication: HYPERTENSION
     Dosage: 90 MG, BID
  7. EINSALPHA [Concomitant]
     Indication: HYPERTENSION
     Dosage: 0.25 MG, QD
  8. LANTUS [Concomitant]
     Indication: TYPE 2 DIABETES MELLITUS
     Dosage: 20 IU, QD
  9. LIPROLOG [Concomitant]
     Indication: TYPE 2 DIABETES MELLITUS
     Dosage: 3 UNK, TID
     Route: 058
  10. MOXONIDINE [Concomitant]
     Indication: HYPERTENSION
     Dosage: 1 DF, BID
     Route: 048
  11. MUCOFALK [Concomitant]
     Indication: CONSTIPATION
     Dosage: 5 MG, BID
     Route: 048
  12. NEXIUM [Concomitant]
     Indication: REFLUX OESOPHAGITIS
     Dosage: 40 MG, QD
     Route: 048

REACTIONS (1)
  - DYSPNOEA [None]
